FAERS Safety Report 5816868-8 (Version None)
Quarter: 2008Q3

REPORT INFORMATION
  Report Type: 
  Country: None (occurrence: None)
  Receive Date: 20080721
  Receipt Date: 20080711
  Transmission Date: 20090109
  Serious: Yes (Death, Congenital Anomaly)
  Sender: FDA-Public Use
  Company Number: US-MERCK-0303USA02941

PATIENT

DRUGS (2)
  1. SINGULAIR [Suspect]
     Route: 064
  2. VITAMINS (UNSPECIFIED) [Concomitant]
     Route: 064

REACTIONS (4)
  - ABORTION SPONTANEOUS [None]
  - DRUG EXPOSURE DURING PREGNANCY [None]
  - PREGNANCY [None]
  - TRISOMY 18 [None]
